FAERS Safety Report 18581784 (Version 1)
Quarter: 2020Q4

REPORT INFORMATION
  Report Type: Spontaneous
  Country: US (occurrence: US)
  Receive Date: 20201204
  Receipt Date: 20201204
  Transmission Date: 20210114
  Serious: Yes (Hospitalization)
  Sender: FDA-Public Use
  Company Number: US-TAKEDA-US202003113

PATIENT
  Age: 68 Year
  Sex: Male

DRUGS (4)
  1. GATTEX [Suspect]
     Active Substance: TEDUGLUTIDE\WATER
     Indication: PRODUCT USED FOR UNKNOWN INDICATION
     Dosage: 1.2380 DAILY
     Route: 058
     Dates: start: 20151109
  2. GATTEX [Suspect]
     Active Substance: TEDUGLUTIDE\WATER
     Indication: PRODUCT USED FOR UNKNOWN INDICATION
     Dosage: 1.2380 DAILY
     Route: 058
     Dates: start: 20151109
  3. GATTEX [Suspect]
     Active Substance: TEDUGLUTIDE\WATER
     Indication: PRODUCT USED FOR UNKNOWN INDICATION
     Dosage: 1.2380 DAILY
     Route: 058
     Dates: start: 20151109
  4. GATTEX [Suspect]
     Active Substance: TEDUGLUTIDE\WATER
     Indication: PRODUCT USED FOR UNKNOWN INDICATION
     Dosage: 1.2380 DAILY
     Route: 058
     Dates: start: 20151109

REACTIONS (2)
  - Product dose omission issue [Recovering/Resolving]
  - Hip surgery [Recovered/Resolved]

NARRATIVE: CASE EVENT DATE: 20200121
